FAERS Safety Report 8777580 (Version 1)
Quarter: 2012Q4

REPORT INFORMATION
  Report Type: 
  Country: FR (occurrence: FR)
  Receive Date: 20120912
  Receipt Date: 20120912
  Transmission Date: 20130627
  Serious: Yes (Death, Hospitalization)
  Sender: FDA-Public Use
  Company Number: PHHY2012FR078298

PATIENT
  Age: 46 Year
  Sex: Female

DRUGS (1)
  1. CICLOSPORIN [Suspect]
     Indication: RENAL TRANSPLANT

REACTIONS (17)
  - Pneumonia aspiration [Fatal]
  - Hepatic failure [Fatal]
  - Coma [Fatal]
  - Hepatic steatosis [Unknown]
  - Central nervous system lesion [Unknown]
  - Disorientation [Unknown]
  - Paraparesis [Unknown]
  - Ataxia [Unknown]
  - Asterixis [Unknown]
  - Somnolence [Unknown]
  - Gait disturbance [Unknown]
  - Respiratory alkalosis [Unknown]
  - Tachypnoea [Fatal]
  - Dyspnoea [Fatal]
  - Renal impairment [Unknown]
  - Hyperammonaemia [Unknown]
  - Hepatic cirrhosis [Unknown]
